FAERS Safety Report 24531602 (Version 1)
Quarter: 2024Q4

REPORT INFORMATION
  Report Type: Report from Study
  Country: US (occurrence: US)
  Receive Date: 20241022
  Receipt Date: 20241022
  Transmission Date: 20250115
  Serious: No
  Sender: ROCHE
  Company Number: US-ROCHE-3449900

PATIENT
  Age: 28 Year
  Sex: Male

DRUGS (7)
  1. PULMOZYME [Suspect]
     Active Substance: DORNASE ALFA
     Indication: Respiratory failure
     Dosage: NEBULIZE THE CONTENTS OF 1 VIAL EVERY NIGHT AT BEDTIME
     Route: 065
  2. PULMOZYME [Suspect]
     Active Substance: DORNASE ALFA
     Indication: Tracheostomy
  3. PULMOZYME [Suspect]
     Active Substance: DORNASE ALFA
     Indication: Chronic respiratory failure
  4. PULMOZYME [Suspect]
     Active Substance: DORNASE ALFA
     Indication: Dependence on respirator
  5. PULMOZYME [Suspect]
     Active Substance: DORNASE ALFA
     Indication: Scoliosis
  6. PULMOZYME [Suspect]
     Active Substance: DORNASE ALFA
     Indication: Hypercapnia
  7. PULMOZYME [Suspect]
     Active Substance: DORNASE ALFA
     Indication: Acute respiratory failure

REACTIONS (5)
  - Product dose omission issue [Unknown]
  - Ill-defined disorder [Unknown]
  - Gastrointestinal disorder [Unknown]
  - Off label use [Unknown]
  - Illness [Unknown]
